FAERS Safety Report 21007502 (Version 2)
Quarter: 2022Q4

REPORT INFORMATION
  Report Type: Spontaneous
  Country: JP (occurrence: JP)
  Receive Date: 20220626
  Receipt Date: 20221114
  Transmission Date: 20230113
  Serious: Yes (Other)
  Sender: FDA-Public Use
  Company Number: JP-BRISTOL-MYERS SQUIBB COMPANY-2022-063038

PATIENT
  Age: 73 Year
  Sex: Female

DRUGS (2)
  1. IPILIMUMAB [Suspect]
     Active Substance: IPILIMUMAB
     Indication: Non-small cell lung cancer
     Route: 065
  2. NIVOLUMAB [Suspect]
     Active Substance: NIVOLUMAB
     Indication: Non-small cell lung cancer
     Route: 065

REACTIONS (7)
  - Hypoxia [Unknown]
  - Pyrexia [Unknown]
  - Arthritis [Unknown]
  - Pneumonitis [Unknown]
  - Tumour pseudoprogression [Unknown]
  - Thyroiditis [Unknown]
  - Hypothyroidism [Unknown]
